FAERS Safety Report 5157257-1 (Version None)
Quarter: 2006Q4

REPORT INFORMATION
  Report Type: 
  Country: None (occurrence: None)
  Receive Date: 20061127
  Receipt Date: 20061120
  Transmission Date: 20070319
  Serious: Yes (Life-Threatening, Hospitalization)
  Sender: FDA-Public Use
  Company Number: PHBS2006ES17966

PATIENT
  Age: 15 Year
  Sex: Male

DRUGS (3)
  1. TEGRETOL [Suspect]
     Dosage: 200 MG/DAY
     Route: 048
     Dates: end: 20060130
  2. RIVOTRIL [Suspect]
     Dosage: 6 MG/DAY
     Route: 048
  3. SEROQUEL [Suspect]
     Dosage: 900 MG/DAY
     Route: 048

REACTIONS (1)
  - OCULOGYRATION [None]
